FAERS Safety Report 7082730-9 (Version None)
Quarter: 2010Q4

REPORT INFORMATION
  Report Type: 
  Country: None (occurrence: None)
  Receive Date: 20101104
  Receipt Date: 20101028
  Transmission Date: 20110411
  Serious: Yes (Life-Threatening, Hospitalization, Other)
  Sender: FDA-Public Use
  Company Number: AU-SANOFI-AVENTIS-2010SA056104

PATIENT
  Age: 37 Year
  Sex: Female
  Weight: 54 kg

DRUGS (6)
  1. TAXOTERE [Suspect]
     Indication: BREAST CANCER
     Route: 041
     Dates: start: 20100907, end: 20100907
  2. CARBOPLATIN [Suspect]
     Indication: BREAST CANCER
     Route: 042
     Dates: start: 20100907, end: 20100907
  3. TRASTUZUMAB [Suspect]
     Indication: BREAST CANCER
     Route: 042
     Dates: start: 20100907, end: 20100907
  4. ZOFRAN [Concomitant]
     Indication: NAUSEA
     Route: 042
     Dates: start: 20100907, end: 20100907
  5. ZOFRAN [Concomitant]
     Route: 048
     Dates: start: 20100907, end: 20100909
  6. DEXAMETHASONE [Concomitant]
     Indication: PREMEDICATION
     Route: 048
     Dates: start: 20100906, end: 20100908

REACTIONS (9)
  - ABDOMINAL DISTENSION [None]
  - ABDOMINAL PAIN [None]
  - ABDOMINAL RIGIDITY [None]
  - DIARRHOEA [None]
  - HYPOTENSION [None]
  - INTESTINAL MASS [None]
  - NEUTROPENIC COLITIS [None]
  - PYREXIA [None]
  - TACHYCARDIA [None]
